FAERS Safety Report 5391202-9 (Version None)
Quarter: 2007Q3

REPORT INFORMATION
  Report Type: 
  Country: None (occurrence: None)
  Receive Date: 20070717
  Receipt Date: 20070705
  Transmission Date: 20080115
  Serious: Yes (Other)
  Sender: FDA-Public Use
  Company Number: 2007BI014184

PATIENT
  Age: 50 Year
  Sex: Male
  Weight: 50.8029 kg

DRUGS (1)
  1. AVONEX [Suspect]
     Indication: MULTIPLE SCLEROSIS
     Dosage: ; IM
     Route: 030

REACTIONS (2)
  - CEREBROVASCULAR ACCIDENT [None]
  - MULTIPLE SCLEROSIS [None]
